FAERS Safety Report 20769342 (Version 1)
Quarter: 2022Q2

REPORT INFORMATION
  Report Type: Spontaneous
  Country: US (occurrence: US)
  Receive Date: 20220429
  Receipt Date: 20220429
  Transmission Date: 20220721
  Serious: No
  Sender: FDA-Public Use
  Company Number: US-TARO-2021TAR01133

PATIENT

DRUGS (2)
  1. FLUOROURACIL [Suspect]
     Active Substance: FLUOROURACIL
     Indication: Acne
     Dosage: UNK, 1/WEEK, ONCE FOR 7 DAYS
     Route: 061
     Dates: start: 202011
  2. FLUOROURACIL [Suspect]
     Active Substance: FLUOROURACIL
     Indication: Basal cell carcinoma

REACTIONS (2)
  - Rash macular [Not Recovered/Not Resolved]
  - Product use issue [Unknown]

NARRATIVE: CASE EVENT DATE: 20211102
